FAERS Safety Report 8085682-8 (Version None)
Quarter: 2012Q1

REPORT INFORMATION
  Report Type: 
  Country: None (occurrence: None)
  Receive Date: 20120128
  Receipt Date: 20110404
  Transmission Date: 20120608
  Serious: No
  Sender: FDA-Public Use
  Company Number: US-ABBOTT-11P-163-0716425-00

PATIENT
  Age: 46 Year
  Sex: Female

DRUGS (4)
  1. HUMIRA [Suspect]
     Indication: PSORIATIC ARTHROPATHY
     Dates: start: 20100901
  2. LISINOPRIL [Concomitant]
     Indication: BLOOD PRESSURE
  3. CYMBALTA [Concomitant]
     Indication: DEPRESSION
  4. TOPAMAX [Concomitant]
     Indication: MIGRAINE

REACTIONS (3)
  - PRURITUS [None]
  - RASH MACULO-PAPULAR [None]
  - RASH [None]
